FAERS Safety Report 10901336 (Version 4)
Quarter: 2015Q2

REPORT INFORMATION
  Report Type: Spontaneous
  Country: US (occurrence: None)
  Receive Date: 20150303
  Receipt Date: 20150504
  Transmission Date: 20150821
  Serious: Yes (Life-Threatening, Other)
  Sender: FDA-Public Use
  Company Number: 2015AP006898

PATIENT
  Age: 19 Year
  Sex: Female
  Weight: 52 kg

DRUGS (2)
  1. DESFERAL (DEFEROXAMINE MESILATE) [Concomitant]
  2. FERRIPROX [Suspect]
     Active Substance: DEFERIPRONE
     Indication: THALASSAEMIA
     Route: 048
     Dates: start: 20141113, end: 20150212

REACTIONS (5)
  - Asthenia [None]
  - Fatigue [None]
  - Epstein-Barr virus infection [None]
  - Nausea [None]
  - Agranulocytosis [None]

NARRATIVE: CASE EVENT DATE: 20150121
